FAERS Safety Report 4454727-6 (Version None)
Quarter: 2004Q3

REPORT INFORMATION
  Report Type: 
  Country: None (occurrence: None)
  Receive Date: 20040826
  Receipt Date: 20040702
  Transmission Date: 20050211
  Serious: Yes (Life-Threatening, Hospitalization)
  Sender: FDA-Public Use
  Company Number: 237965

PATIENT
  Age: 69 Year
  Sex: Female

DRUGS (14)
  1. NOVOLOG MIX 70/30 [Suspect]
     Indication: INSULIN-REQUIRING TYPE II DIABETES MELLITUS
     Dosage: 34 IU, BID, SUBCUTANEOUS; SEE IMAGE
     Route: 058
     Dates: start: 20040101, end: 20040630
  2. NOVOLOG MIX 70/30 [Suspect]
     Indication: INSULIN-REQUIRING TYPE II DIABETES MELLITUS
     Dosage: 34 IU, BID, SUBCUTANEOUS; SEE IMAGE
     Route: 058
     Dates: start: 20040701
  3. PLAVIX [Concomitant]
  4. COREG [Concomitant]
  5. ACETYLSALICYLIC ACID SRT [Concomitant]
  6. DIOVAN ^CIBA-GEIGY^ (VALSARTAN) [Concomitant]
  7. ISOSORBIDE (ISOSORBIDE) [Concomitant]
  8. CLARINEX(LORATADINE,PSEUDOEPHEDRINE SULFATE) [Concomitant]
  9. FUROSEMIDE [Concomitant]
  10. FOLIC ACID [Concomitant]
  11. TRILEPTAL [Concomitant]
  12. AMBIEN [Concomitant]
  13. LIPITOR [Concomitant]
  14. AMITRIPTYLINE HCL [Concomitant]

REACTIONS (1)
  - HYPOGLYCAEMIC COMA [None]
